FAERS Safety Report 10985767 (Version 1)
Quarter: 2015Q2

REPORT INFORMATION
  Report Type: Spontaneous
  Country: US (occurrence: US)
  Receive Date: 20150404
  Receipt Date: 20150404
  Transmission Date: 20150821
  Serious: No
  Sender: FDA-Public Use
  Company Number: US-SA-2014SA067834

PATIENT
  Age: 65 Year
  Sex: Female

DRUGS (1)
  1. ALLEGRA-D [Suspect]
     Active Substance: FEXOFENADINE\PSEUDOEPHEDRINE
     Indication: HYPERSENSITIVITY
     Route: 065
     Dates: start: 20140515, end: 20140515

REACTIONS (3)
  - Feeling abnormal [Unknown]
  - Irritability [Unknown]
  - Nervousness [Unknown]

NARRATIVE: CASE EVENT DATE: 20140515
